FAERS Safety Report 6618815-8 (Version None)
Quarter: 2010Q1

REPORT INFORMATION
  Report Type: 
  Country: None (occurrence: None)
  Receive Date: 20100304
  Receipt Date: 20100304
  Transmission Date: 20100710
  Serious: Yes (Other)
  Sender: FDA-Public Use
  Company Number: None

PATIENT
  Age: 89 Year
  Sex: Female
  Weight: 68.0396 kg

DRUGS (2)
  1. ZICAM COLD REMEDY - NASAL GEL [Suspect]
     Indication: OROPHARYNGEAL PAIN
     Dosage: ONE SQUIRT EVERY FEW HOURS NOSE WINTER 2/09 TO WINTER 2/10
     Route: 045
     Dates: start: 20090201, end: 20100201
  2. ZICAM COLD REMEDY - NASAL GEL [Suspect]
     Indication: RHINORRHOEA
     Dosage: ONE SQUIRT EVERY FEW HOURS NOSE WINTER 2/09 TO WINTER 2/10
     Route: 045
     Dates: start: 20090201, end: 20100201

REACTIONS (1)
  - RHINALGIA [None]
